FAERS Safety Report 4547314-2 (Version None)
Quarter: 2005Q1

REPORT INFORMATION
  Report Type: 
  Country: None (occurrence: None)
  Receive Date: 20050105
  Receipt Date: 20041223
  Transmission Date: 20050727
  Serious: Yes (Hospitalization, Other)
  Sender: FDA-Public Use
  Company Number: 2004118896

PATIENT
  Age: 70 Year
  Sex: Male
  Weight: 149.687 kg

DRUGS (2)
  1. CELEBREX [Suspect]
     Indication: ARTHRALGIA
     Dosage: 200 MG (200 MG, 1 IN 1 D), ORAL
     Route: 048
     Dates: start: 20031212, end: 20031201
  2. METOPROLOL TARTRATE [Concomitant]

REACTIONS (8)
  - CELLULITIS [None]
  - CHONDROPATHY [None]
  - DYSPNOEA [None]
  - FEELING ABNORMAL [None]
  - HEART RATE IRREGULAR [None]
  - OEDEMA PERIPHERAL [None]
  - PAIN [None]
  - WEIGHT DECREASED [None]
